FAERS Safety Report 8590552-2 (Version None)
Quarter: 2012Q3

REPORT INFORMATION
  Report Type: 
  Country: None (occurrence: None)
  Receive Date: 20120813
  Receipt Date: 20120801
  Transmission Date: 20120928
  Serious: Yes (Other)
  Sender: FDA-Public Use
  Company Number: JP-ROCHE-642425

PATIENT
  Sex: Female

DRUGS (12)
  1. LOXONIN [Concomitant]
     Dosage: FORM: PERORAL AGENT
     Route: 048
  2. PREDNISOLONE [Concomitant]
     Route: 048
  3. METHOTREXATE [Suspect]
     Route: 048
     Dates: start: 20090408, end: 20090410
  4. DIOVAN [Concomitant]
     Route: 048
  5. RABEPRAZOLE SODIUM [Concomitant]
     Route: 048
  6. ACTEMRA [Suspect]
     Route: 041
     Dates: start: 20090318, end: 20090401
  7. FOLIC ACID [Concomitant]
     Dosage: FORM: PERORAL AGENT
     Route: 048
  8. METHOTREXATE [Suspect]
     Indication: RHEUMATOID ARTHRITIS
     Dosage: FORM REPORTED AS PERORAL AGENT
     Route: 048
     Dates: start: 20090204, end: 20090312
  9. CONIEL [Concomitant]
     Route: 048
  10. ACTEMRA [Suspect]
     Indication: RHEUMATOID ARTHRITIS
     Route: 041
     Dates: start: 20090218, end: 20090218
  11. AMARYL [Concomitant]
     Route: 048
  12. ALFAROL [Concomitant]
     Route: 048

REACTIONS (7)
  - VOMITING [None]
  - LOWER LIMB FRACTURE [None]
  - PLATELET COUNT DECREASED [None]
  - PANCYTOPENIA [None]
  - COMPRESSION FRACTURE [None]
  - WHITE BLOOD CELL COUNT DECREASED [None]
  - DECREASED APPETITE [None]
